FAERS Safety Report 15489385 (Version 1)
Quarter: 2018Q4

REPORT INFORMATION
  Report Type: Spontaneous
  Country: US (occurrence: US)
  Receive Date: 20181011
  Receipt Date: 20181011
  Transmission Date: 20190205
  Serious: Yes (Other)
  Sender: FDA-Public Use
  Company Number: US-PFIZER INC-2018406336

PATIENT
  Sex: Female

DRUGS (1)
  1. CHANTIX [Suspect]
     Active Substance: VARENICLINE TARTRATE
     Indication: SMOKING CESSATION THERAPY
     Dosage: UNK
     Dates: start: 2018, end: 2018

REACTIONS (8)
  - Alcohol poisoning [Unknown]
  - Alcohol interaction [Unknown]
  - Somnambulism [Unknown]
  - Stomatitis [Unknown]
  - Hypoaesthesia [Unknown]
  - Facial paresis [Unknown]
  - Aggression [Unknown]
  - Mood altered [Unknown]
